FAERS Safety Report 11806497 (Version 5)
Quarter: 2016Q2

REPORT INFORMATION
  Report Type: Report from Study
  Country: US (occurrence: US)
  Receive Date: 20151207
  Receipt Date: 20160414
  Transmission Date: 20160815
  Serious: Yes (Hospitalization, Other)
  Sender: FDA-Public Use
  Company Number: US-BAYER-2015-479227

PATIENT
  Age: 70 Year
  Sex: Male

DRUGS (21)
  1. CARVEDILOL. [Concomitant]
     Active Substance: CARVEDILOL
     Dosage: 6.5 MG, BID
  2. CARVEDILOL. [Concomitant]
     Active Substance: CARVEDILOL
     Dosage: 25 MG, BID TAKE WITH FOOD OR MILK
     Route: 048
  3. VITAMIN D [Concomitant]
     Active Substance: CHOLECALCIFEROL
  4. NEXAVAR [Suspect]
     Active Substance: SORAFENIB
     Indication: ACUTE MYELOID LEUKAEMIA
     Dosage: 200 MG, QD
     Route: 048
     Dates: start: 20151214, end: 20160108
  5. WARFARIN [Concomitant]
     Active Substance: WARFARIN
  6. ZOFRAN [Concomitant]
     Active Substance: ONDANSETRON HYDROCHLORIDE
  7. ASPIRIN. [Concomitant]
     Active Substance: ASPIRIN
  8. IRBESARTAN. [Concomitant]
     Active Substance: IRBESARTAN
     Dosage: 150 MG, QD (HALF TABLET)
     Route: 048
  9. OMEPRAZOLE. [Concomitant]
     Active Substance: OMEPRAZOLE
  10. COREG [Concomitant]
     Active Substance: CARVEDILOL
     Dosage: 3105 MG, BID
     Route: 048
  11. VITAMIN D3 [Concomitant]
     Active Substance: CHOLECALCIFEROL
     Dosage: 1000 UNITS DAILY
     Route: 048
  12. HYDROMORPHONE [Concomitant]
     Active Substance: HYDROMORPHONE
     Dosage: 2 MG  1 OR 2 EVERY 4 HRS PRN
     Route: 048
  13. ACETAMINOPHEN. [Concomitant]
     Active Substance: ACETAMINOPHEN
     Dosage: 1 TABLET EVERY TWELVE HOURS
     Route: 048
  14. LORAZEPAM. [Concomitant]
     Active Substance: LORAZEPAM
     Dosage: 0.5 MG Q 4 HRS PRN
     Route: 048
  15. SIMVASTATIN. [Concomitant]
     Active Substance: SIMVASTATIN
     Dosage: 20 MG, HS
     Route: 048
  16. NEXAVAR [Suspect]
     Active Substance: SORAFENIB
     Indication: ACUTE MYELOID LEUKAEMIA
     Dosage: 200 MG, BID
     Route: 048
     Dates: start: 20160126, end: 2016
  17. PRILOSEC [Concomitant]
     Active Substance: OMEPRAZOLE MAGNESIUM
     Dosage: 20 MG, QD
     Route: 048
  18. NEXAVAR [Suspect]
     Active Substance: SORAFENIB
     Indication: ACUTE MYELOID LEUKAEMIA
     Dosage: 400 MG, BID
     Route: 048
     Dates: start: 20151117, end: 20151124
  19. NEXAVAR [Suspect]
     Active Substance: SORAFENIB
     Indication: ACUTE MYELOID LEUKAEMIA RECURRENT
     Dosage: 400 MG, BID (4 X 200 MG)
     Route: 048
     Dates: start: 20151207
  20. ZOCOR [Concomitant]
     Active Substance: SIMVASTATIN
  21. CILOSTAZOL. [Concomitant]
     Active Substance: CILOSTAZOL

REACTIONS (20)
  - Dehydration [None]
  - Asthenia [None]
  - Dyspnoea exertional [None]
  - Renal failure [None]
  - Abdominal pain [None]
  - Thrombocytopenia [None]
  - Pancytopenia [None]
  - Infection [Unknown]
  - Diverticulitis [None]
  - Blood viscosity decreased [Not Recovered/Not Resolved]
  - Pyrexia [Recovered/Resolved]
  - Musculoskeletal stiffness [Unknown]
  - Haemoglobin decreased [None]
  - Atrial fibrillation [None]
  - Diverticulitis [Recovering/Resolving]
  - Off label use [None]
  - Diarrhoea [None]
  - Blood potassium decreased [None]
  - International normalised ratio decreased [None]
  - Bone pain [Unknown]

NARRATIVE: CASE EVENT DATE: 20151124
